FAERS Safety Report 6422762-4 (Version None)
Quarter: 2009Q4

REPORT INFORMATION
  Report Type: 
  Country: None (occurrence: None)
  Receive Date: 20091102
  Receipt Date: 20091028
  Transmission Date: 20100525
  Serious: Yes (Other)
  Sender: FDA-Public Use
  Company Number: US-BRISTOL-MYERS SQUIBB COMPANY-14835078

PATIENT
  Age: 58 Year
  Sex: Female
  Weight: 102 kg

DRUGS (11)
  1. CYCLOPHOSPHAMIDE [Suspect]
     Indication: NON-HODGKIN'S LYMPHOMA
     Dosage: RECEIVED ON 23APR09,14MAY,4JUN (4TH CYC),25JUN (5TH CYC) AND 16JUL09 (6TH CYC)
     Route: 065
  2. DOXORUBICIN HCL [Suspect]
     Indication: NON-HODGKIN'S LYMPHOMA
     Dosage: RECEIVED ON 23APR09,14MAY,4JUN (4TH CYC),25JUN (5TH CYC) AND 16JUL09 (6TH CYC)
     Route: 065
  3. RITUXIMAB [Suspect]
     Indication: NON-HODGKIN'S LYMPHOMA
     Dosage: RECEIVED ON 23APR09,14MAY,4JUN (4TH CYC),25JUN (5TH CYC) AND 16JUL09 (6TH CYC)
     Route: 065
  4. VINCRISTINE SULFATE [Suspect]
     Indication: NON-HODGKIN'S LYMPHOMA
     Dosage: RECEIVED ON 23APR09,14MAY,4JUN (4TH CYC),25JUN (5TH CYC) AND 16JUL09 (6TH CYC)
     Route: 065
  5. PREDNISOLONE [Suspect]
     Indication: NON-HODGKIN'S LYMPHOMA
  6. NEULASTA [Suspect]
     Dosage: NEULASTA-PREFILLED SYRINGE INITIATED ON 24APR09 ON 14MAY09 HELD 05JUN09:6MG
     Dates: start: 20090424, end: 20090101
  7. IBUPROFEN [Concomitant]
     Route: 065
     Dates: start: 20090204
  8. CYCLOBENZAPRINE HCL [Concomitant]
     Route: 065
     Dates: start: 20090204
  9. ALLOPURINOL [Concomitant]
     Route: 065
     Dates: start: 20090415
  10. OMEPRAZOLE [Concomitant]
     Route: 065
     Dates: start: 20090415
  11. ACETAMINOPHEN [Concomitant]

REACTIONS (4)
  - BONE PAIN [None]
  - KERATITIS [None]
  - MALAISE [None]
  - NEUTROPENIA [None]
